FAERS Safety Report 19631741 (Version 2)
Quarter: 2021Q3

REPORT INFORMATION
  Report Type: Spontaneous
  Country: US (occurrence: US)
  Receive Date: 20210729
  Receipt Date: 20210805
  Transmission Date: 20211014
  Serious: Yes (Other)
  Sender: FDA-Public Use
  Company Number: US-TEVA-2021-US-1935914

PATIENT
  Age: 51 Year
  Sex: Male

DRUGS (2)
  1. LEUPROLIDE [Concomitant]
     Active Substance: LEUPROLIDE
     Indication: HORMONE-REFRACTORY PROSTATE CANCER
     Route: 065
  2. DOCETAXEL. [Suspect]
     Active Substance: DOCETAXEL
     Indication: HORMONE-REFRACTORY PROSTATE CANCER
     Dosage: RECEIVED 3 CYCLES?ADDITIONAL INFO: ROUTE: {INFUSION}
     Route: 050

REACTIONS (1)
  - Infusion related reaction [Unknown]
